FAERS Safety Report 5905702-3 (Version None)
Quarter: 2008Q4

REPORT INFORMATION
  Report Type: 
  Country: None (occurrence: None)
  Receive Date: 20081002
  Receipt Date: 20080923
  Transmission Date: 20090506
  Serious: Yes (Hospitalization, Other)
  Sender: FDA-Public Use
  Company Number: US-BAYER-200813854BCC

PATIENT
  Age: 72 Year
  Sex: Female

DRUGS (18)
  1. ASPIRIN [Suspect]
     Indication: STENT PLACEMENT
     Dosage: TOTAL DAILY DOSE: 325 MG  UNIT DOSE: 325 MG
     Route: 048
     Dates: start: 20070720
  2. PLAVIX [Suspect]
     Indication: STENT PLACEMENT
     Dosage: TOTAL DAILY DOSE: 75 MG  UNIT DOSE: 75 MG
     Route: 048
     Dates: start: 20070720, end: 20080725
  3. INSULIN GLARGINE [Concomitant]
  4. INSULIN ASPART [Concomitant]
  5. SIMVASTATIN [Concomitant]
     Dosage: TOTAL DAILY DOSE: 40 MG
     Route: 048
  6. OLMESARTAN MEDOXOMIL [Concomitant]
     Dosage: TOTAL DAILY DOSE: 5 MG
     Route: 048
  7. LEVOTHYROXINE SODIUM [Concomitant]
     Dosage: TOTAL DAILY DOSE: 100 ?G
     Route: 048
  8. BUMETANIDE [Concomitant]
     Dosage: TOTAL DAILY DOSE: 2 MG
     Route: 048
  9. NITROFURANTOIN [Concomitant]
     Dosage: TOTAL DAILY DOSE: 100 MG
     Route: 048
  10. POTASSIUM CHLORIDE [Concomitant]
     Route: 048
  11. NITROGLYCERIN [Concomitant]
     Route: 060
  12. MOMETASONE FUROATE [Concomitant]
     Route: 045
  13. FOLIC ACID [Concomitant]
     Dosage: TOTAL DAILY DOSE: 1 MG
     Route: 048
  14. TRAZODONE HCL [Concomitant]
     Dosage: TOTAL DAILY DOSE: 50 MG
     Route: 048
  15. PANTOPRAZOLE SODIUM [Concomitant]
     Dosage: TOTAL DAILY DOSE: 40  MG
     Route: 048
  16. VITAMIN D [Concomitant]
  17. ALLOPURINOL [Concomitant]
     Dosage: TOTAL DAILY DOSE: 200 MG
     Route: 048
  18. MISOPROSTOL [Concomitant]
     Route: 048

REACTIONS (13)
  - ASTHENIA [None]
  - BLOOD COUNT ABNORMAL [None]
  - CEREBROVASCULAR ACCIDENT [None]
  - DYSSTASIA [None]
  - FAECES DISCOLOURED [None]
  - FALL [None]
  - GASTRIC HAEMORRHAGE [None]
  - JAW FRACTURE [None]
  - LOSS OF CONSCIOUSNESS [None]
  - MEMORY IMPAIRMENT [None]
  - MOUTH INJURY [None]
  - PULMONARY MASS [None]
  - WRIST FRACTURE [None]
